FAERS Safety Report 24082931 (Version 1)
Quarter: 2024Q3

REPORT INFORMATION
  Report Type: Spontaneous
  Country: BE (occurrence: BE)
  Receive Date: 20240712
  Receipt Date: 20240712
  Transmission Date: 20241016
  Serious: Yes (Hospitalization, Other)
  Sender: ASTELLAS
  Company Number: BE-ASTELLAS-2024EU006723

PATIENT
  Age: 32 Year
  Sex: Female

DRUGS (29)
  1. TACROLIMUS [Interacting]
     Active Substance: TACROLIMUS
     Indication: Liver transplant
     Dosage: 8 MG, ONCE DAILY (WHICH CORRESPONDED WITH A TAC TROUGH LEVEL (TL) OF APPROXIMATELY 6.8 NG/ML)
     Route: 065
  2. TACROLIMUS [Interacting]
     Active Substance: TACROLIMUS
     Route: 065
  3. TACROLIMUS [Interacting]
     Active Substance: TACROLIMUS
     Route: 065
  4. TACROLIMUS [Interacting]
     Active Substance: TACROLIMUS
     Dosage: UNK UNK, UNKNOWN FREQ. (TAC-DOSAGES WERE ADJUSTED MULTIPLE TIMES OVER THE COURSE OF SEVERAL WEEKS)
     Route: 065
  5. TACROLIMUS [Interacting]
     Active Substance: TACROLIMUS
     Dosage: UNK UNK, UNKNOWN FREQ. (UP TO 18?20 MG WHICH ONLY CORRELATED WITH A TAC TL OF 5.8 NG/ML)
     Route: 065
  6. TACROLIMUS [Interacting]
     Active Substance: TACROLIMUS
     Route: 065
  7. TACROLIMUS [Interacting]
     Active Substance: TACROLIMUS
     Dosage: 10 MG, UNKNOWN FREQ. (CORRESPONDING WITH A TAC TL OF APPROXIMATELY 11 NG/ML)
     Route: 065
  8. TACROLIMUS [Interacting]
     Active Substance: TACROLIMUS
     Dosage: 6 MG, UNKNOWN FREQ. (CORRESPONDING TO A TAC TL OF APPROXIMATELY 10 NG/ML)
     Route: 065
  9. TACROLIMUS [Interacting]
     Active Substance: TACROLIMUS
     Dosage: UNK UNK, UNKNOWN FREQ.
     Route: 065
  10. RIFAMPIN [Interacting]
     Active Substance: RIFAMPIN
     Indication: Cholestatic pruritus
     Dosage: UNK UNK, UNKNOWN FREQ.
     Route: 065
  11. CELLCEPT [Suspect]
     Active Substance: MYCOPHENOLATE MOFETIL
     Indication: Liver transplant
     Route: 065
  12. CELLCEPT [Suspect]
     Active Substance: MYCOPHENOLATE MOFETIL
     Route: 065
  13. CELLCEPT [Suspect]
     Active Substance: MYCOPHENOLATE MOFETIL
     Route: 065
  14. CELLCEPT [Suspect]
     Active Substance: MYCOPHENOLATE MOFETIL
     Route: 065
  15. MEDROL [Suspect]
     Active Substance: METHYLPREDNISOLONE
     Indication: Liver transplant
     Route: 048
  16. MEDROL [Suspect]
     Active Substance: METHYLPREDNISOLONE
     Indication: Liver transplant rejection
     Route: 048
  17. MEDROL [Suspect]
     Active Substance: METHYLPREDNISOLONE
     Route: 048
  18. MEDROL [Suspect]
     Active Substance: METHYLPREDNISOLONE
     Route: 042
  19. MEDROL [Suspect]
     Active Substance: METHYLPREDNISOLONE
     Dosage: UNK UNK, UNKNOWN FREQ.
     Route: 065
  20. MEDROL [Suspect]
     Active Substance: METHYLPREDNISOLONE
     Route: 048
  21. MEDROL [Suspect]
     Active Substance: METHYLPREDNISOLONE
     Route: 065
  22. MEDROL [Suspect]
     Active Substance: METHYLPREDNISOLONE
     Route: 065
  23. CERTICAN [Suspect]
     Active Substance: EVEROLIMUS
     Indication: Prophylaxis
     Dosage: 0.75 MG, TWICE DAILY (CORRESPONDING WITH A EVL TL OF 2.4 NG/ML)
     Route: 065
  24. CERTICAN [Suspect]
     Active Substance: EVEROLIMUS
     Route: 065
  25. CERTICAN [Suspect]
     Active Substance: EVEROLIMUS
     Route: 065
  26. SOLU-MEDROL [Suspect]
     Active Substance: METHYLPREDNISOLONE SODIUM SUCCINATE
     Indication: Transplant rejection
     Route: 048
  27. SOLU-MEDROL [Suspect]
     Active Substance: METHYLPREDNISOLONE SODIUM SUCCINATE
     Route: 065
  28. SOLU-MEDROL [Suspect]
     Active Substance: METHYLPREDNISOLONE SODIUM SUCCINATE
     Route: 065
  29. LAPINE T-LYMPHOCYTE IMMUNE GLOBULIN [Suspect]
     Active Substance: LAPINE T-LYMPHOCYTE IMMUNE GLOBULIN
     Indication: Liver transplant rejection
     Route: 065

REACTIONS (8)
  - Toxic cardiomyopathy [Unknown]
  - Tremor [Unknown]
  - Bile duct stenosis [Not Recovered/Not Resolved]
  - Hypertension [Unknown]
  - Glucose tolerance impaired [Unknown]
  - Renal impairment [Unknown]
  - Renal failure [Unknown]
  - Drug interaction [Unknown]
